FAERS Safety Report 7653897-6 (Version None)
Quarter: 2011Q3

REPORT INFORMATION
  Report Type: 
  Country: None (occurrence: None)
  Receive Date: 20110727
  Receipt Date: 20110525
  Transmission Date: 20111222
  Serious: Yes (Other)
  Sender: FDA-Public Use
  Company Number: OMPQ-PR-1105S-0509

PATIENT
  Age: 18 Year
  Sex: Male

DRUGS (1)
  1. OMNIPAQUE 70 [Suspect]
     Indication: ABDOMINAL PAIN
     Dosage: 100 ML, SINGLE DOSE, INTRAVENOUS
     Route: 042
     Dates: start: 20110525, end: 20110525

REACTIONS (3)
  - THROAT TIGHTNESS [None]
  - ANAPHYLACTOID REACTION [None]
  - URTICARIA [None]
